FAERS Safety Report 16551895 (Version 2)
Quarter: 2020Q1

REPORT INFORMATION
  Report Type: Spontaneous
  Country: GB (occurrence: GB)
  Receive Date: 20190710
  Receipt Date: 20200116
  Transmission Date: 20200409
  Serious: Yes (Death)
  Sender: FDA-Public Use
  Company Number: GB-PFIZER INC-2019290932

PATIENT
  Age: 70 Year
  Sex: Female
  Weight: 72.11 kg

DRUGS (12)
  1. LANSOPRAZOLE. [Concomitant]
     Active Substance: LANSOPRAZOLE
     Dosage: 60 MG, DAILY
     Dates: start: 19990730
  2. LEVOTHYROXINE. [Concomitant]
     Active Substance: LEVOTHYROXINE
     Dosage: 75 UG, DAILY
     Dates: start: 19911015
  3. FEXOFENADINE [Concomitant]
     Active Substance: FEXOFENADINE HYDROCHLORIDE
     Dosage: 180 MG, DAILY
     Dates: start: 20171120
  4. ATORVASTATIN [Suspect]
     Active Substance: ATORVASTATIN
     Indication: TRANSIENT ISCHAEMIC ATTACK
     Dosage: AT NIGHT
     Route: 048
     Dates: start: 20181109, end: 20190330
  5. FERROUS FUMARATE [Concomitant]
     Active Substance: FERROUS FUMARATE
     Dosage: 210 MG, ALTERNATE DAY
     Dates: start: 201110
  6. SERTRALINE [Concomitant]
     Active Substance: SERTRALINE HYDROCHLORIDE
     Dosage: 150 MG, DAILY
     Dates: start: 20130730, end: 20180625
  7. ADCAL D3 [Concomitant]
     Active Substance: CALCIUM CARBONATE\CHOLECALCIFEROL
     Dosage: 4 DF, DAILY
     Dates: start: 20130901
  8. FORCEVAL [ASCORBIC ACID;BIOTIN;CALCIUM;CHROMIUM;COPPER;ERGOCALCIFEROL; [Concomitant]
     Dosage: 1 DF, DAILY
     Dates: start: 20111031
  9. CLOPIDOGREL [Concomitant]
     Active Substance: CLOPIDOGREL BISULFATE
     Indication: TRANSIENT ISCHAEMIC ATTACK
     Dosage: 75 MG, DAILY
     Dates: start: 20181109
  10. INDAPAMIDE. [Concomitant]
     Active Substance: INDAPAMIDE
     Dosage: 2.5 MG, DAILY
     Dates: start: 20180624
  11. RAMIPRIL. [Concomitant]
     Active Substance: RAMIPRIL
     Dosage: 5 MG, DAILY
     Dates: start: 20140708
  12. AMITRIPTYLINE [Concomitant]
     Active Substance: AMITRIPTYLINE
     Dosage: 75 MG, DAILY AT NIGHT
     Dates: start: 20050708

REACTIONS (2)
  - Interstitial lung disease [Fatal]
  - Dyspnoea [Unknown]

NARRATIVE: CASE EVENT DATE: 201902
